FAERS Safety Report 5401417-9 (Version None)
Quarter: 2007Q3

REPORT INFORMATION
  Report Type: 
  Country: None (occurrence: None)
  Receive Date: 20070731
  Receipt Date: 20070726
  Transmission Date: 20080115
  Serious: Yes (Other)
  Sender: FDA-Public Use
  Company Number: US-MERCK-0706USA02328

PATIENT
  Sex: Female

DRUGS (2)
  1. JANUMET [Suspect]
     Indication: TYPE 2 DIABETES MELLITUS
     Route: 048
     Dates: start: 20070601
  2. HYZAAR [Concomitant]
     Route: 065

REACTIONS (2)
  - FACIAL PALSY [None]
  - GLYCOSYLATED HAEMOGLOBIN INCREASED [None]
